FAERS Safety Report 9563653 (Version 1)
Quarter: 2013Q3

REPORT INFORMATION
  Report Type: Spontaneous
  Country: FR (occurrence: None)
  Receive Date: 20130926
  Receipt Date: 20130926
  Transmission Date: 20140515
  Serious: Yes (Hospitalization)
  Sender: FDA-Public Use
  Company Number: 1886959

PATIENT
  Age: 59 Year
  Sex: Female

DRUGS (3)
  1. CARBOPLATIN [Suspect]
     Indication: OVARIAN CANCER
     Route: 041
     Dates: start: 20120404, end: 20120404
  2. PACLITAXEL EBEWE [Concomitant]
  3. AVASTIN /00848101/ [Concomitant]

REACTIONS (7)
  - Erythema [None]
  - Dyspnoea [None]
  - Paraesthesia [None]
  - Flushing [None]
  - Fatigue [None]
  - Nausea [None]
  - Burning sensation [None]
